FAERS Safety Report 26207968 (Version 1)
Quarter: 2025Q4

REPORT INFORMATION
  Report Type: Spontaneous
  Country: EU (occurrence: EU)
  Receive Date: 20251229
  Receipt Date: 20251229
  Transmission Date: 20260118
  Serious: Yes (Hospitalization, Other)
  Sender: AUROBINDO
  Company Number: EU-AFSSAPS-PA2025001167

PATIENT
  Age: 54 Year
  Sex: Female

DRUGS (3)
  1. OLANZAPINE [Suspect]
     Active Substance: OLANZAPINE
     Indication: Bipolar I disorder
     Dosage: 30 MILLIGRAM, ONCE A DAY
     Route: 061
     Dates: start: 20251002, end: 20251015
  2. CHLORPROMAZINE HYDROCHLORIDE [Concomitant]
     Active Substance: CHLORPROMAZINE HYDROCHLORIDE
     Indication: Bipolar I disorder
     Dosage: 300 MILLIGRAM, ONCE A DAY
     Route: 061
     Dates: start: 20251002, end: 20251007
  3. CHLORPROMAZINE HYDROCHLORIDE [Concomitant]
     Active Substance: CHLORPROMAZINE HYDROCHLORIDE
     Dosage: 400 MILLIGRAM, ONCE A DAY
     Route: 061
     Dates: start: 20251008, end: 20251011

REACTIONS (1)
  - Hepatic cytolysis [Recovered/Resolved]

NARRATIVE: CASE EVENT DATE: 20251009
